FAERS Safety Report 11044900 (Version 2)
Quarter: 2015Q2

REPORT INFORMATION
  Report Type: Spontaneous
  Country: AU (occurrence: AU)
  Receive Date: 20150417
  Receipt Date: 20150506
  Transmission Date: 20150821
  Serious: Yes (Death, Hospitalization, Other)
  Sender: FDA-Public Use
  Company Number: AU-GLAXOSMITHKLINE-AU2015GSK048784

PATIENT
  Age: 90 Year
  Sex: Male
  Weight: 63 kg

DRUGS (3)
  1. MEKINIST [Suspect]
     Active Substance: TRAMETINIB DIMETHYL SULFOXIDE
     Dosage: 1.5 UNK, UNK
     Dates: start: 20140911
  2. MEKINIST [Suspect]
     Active Substance: TRAMETINIB DIMETHYL SULFOXIDE
     Dosage: 1.5 UNK, UNK
     Dates: start: 20141008
  3. MEKINIST [Suspect]
     Active Substance: TRAMETINIB DIMETHYL SULFOXIDE
     Indication: RASH
     Dosage: 2 MG, UNK
     Dates: start: 20140813, end: 20140910

REACTIONS (4)
  - Arthralgia [Unknown]
  - Pneumonia aspiration [Fatal]
  - Femur fracture [Unknown]
  - Sepsis [Fatal]

NARRATIVE: CASE EVENT DATE: 20150205
